FAERS Safety Report 8047321-1 (Version None)
Quarter: 2012Q1

REPORT INFORMATION
  Report Type: 
  Country: None (occurrence: None)
  Receive Date: 20120116
  Receipt Date: 20120104
  Transmission Date: 20120608
  Serious: Yes (Hospitalization)
  Sender: FDA-Public Use
  Company Number: US-NOVOPROD-337700

PATIENT
  Age: 9 Year
  Sex: Male
  Weight: 28.1 kg

DRUGS (4)
  1. NORDITROPIN FLEXPRO [Suspect]
     Indication: DWARFISM
     Dosage: 1.3 MG, QD
     Route: 058
     Dates: start: 20101001
  2. IPRATROPIUM BROMIDE [Concomitant]
     Indication: PRODUCT USED FOR UNKNOWN INDICATION
     Dosage: 0.02% SOLN, 1 VIAL NEBULIZED Q 4 HOURS, PRN
  3. PULMICORT [Concomitant]
     Indication: RESPIRATORY DISORDER
     Dosage: 0.5 MG/2ML, 1 DOSE SVN (SMALL VOLUME NEBULIZER) DAILY IN AM, PRN
  4. XOPENEX [Concomitant]
     Indication: PRODUCT USED FOR UNKNOWN INDICATION
     Dosage: 0.63 MG/3ML, SVN Q4 HOURS, PRN

REACTIONS (1)
  - SHUNT MALFUNCTION [None]
